FAERS Safety Report 19219452 (Version 2)
Quarter: 2022Q2

REPORT INFORMATION
  Report Type: Spontaneous
  Country: US (occurrence: None)
  Receive Date: 20210506
  Receipt Date: 20220426
  Transmission Date: 20220720
  Serious: No
  Sender: FDA-Public Use
  Company Number: US-ROCHE-2645035

PATIENT
  Age: 74 Year
  Sex: Male
  Weight: 81.720 kg

DRUGS (4)
  1. ESBRIET [Suspect]
     Active Substance: PIRFENIDONE
     Indication: Idiopathic pulmonary fibrosis
     Route: 048
     Dates: start: 201909, end: 202006
  2. ESBRIET [Suspect]
     Active Substance: PIRFENIDONE
     Route: 048
     Dates: start: 202101
  3. OFEV [Suspect]
     Active Substance: NINTEDANIB
     Indication: Idiopathic pulmonary fibrosis
     Route: 065
     Dates: start: 202006, end: 202101
  4. PREDNISONE [Concomitant]
     Active Substance: PREDNISONE
     Indication: Cough
     Route: 048

REACTIONS (4)
  - Sunburn [Recovered/Resolved]
  - Skin exfoliation [Unknown]
  - Pruritus [Unknown]
  - Hyperaesthesia [Not Recovered/Not Resolved]

NARRATIVE: CASE EVENT DATE: 20200301
